FAERS Safety Report 9454223 (Version 1)
Quarter: 2013Q3

REPORT INFORMATION
  Report Type: Spontaneous
  Country: US (occurrence: US)
  Receive Date: 20130812
  Receipt Date: 20130812
  Transmission Date: 20140515
  Serious: No
  Sender: FDA-Public Use
  Company Number: US-PFIZER INC-2013231502

PATIENT
  Age: 68 Year
  Sex: Female
  Weight: 74.83 kg

DRUGS (8)
  1. CELEBREX [Suspect]
     Indication: HERPES ZOSTER
     Dosage: 200 MG, 1X/DAY
     Dates: end: 2013
  2. NEURONTIN [Suspect]
     Indication: HERPES ZOSTER
     Dosage: 600 MG, 1X/DAY
  3. NEURONTIN [Suspect]
     Dosage: 900 MG, 3X/DAY
     Dates: end: 2013
  4. PROZAC [Concomitant]
     Indication: DEPRESSION
     Dosage: 60 MG (20MG X 3), 1X/DAY
  5. METFORMIN [Concomitant]
     Indication: DIABETES MELLITUS
     Dosage: UNK, 2X/DAY
  6. CLONAZEPAM [Concomitant]
     Indication: ANXIETY
     Dosage: UNK
  7. PRAVASTATIN [Concomitant]
     Dosage: UNK
  8. PREDNISONE [Concomitant]
     Dosage: (5MG AND 7.5MG ON ALTERNATE DAYS,1X/DAY

REACTIONS (1)
  - Fibromyalgia [Unknown]
